FAERS Safety Report 8611117-X (Version None)
Quarter: 2012Q3

REPORT INFORMATION
  Report Type: 
  Country: None (occurrence: None)
  Receive Date: 20120808
  Receipt Date: 20120724
  Transmission Date: 20120928
  Serious: Yes (Hospitalization, Other)
  Sender: FDA-Public Use
  Company Number: CIP11002926

PATIENT
  Age: 63 Year
  Sex: Female
  Weight: 75.9 kg

DRUGS (4)
  1. ACTONEL [Suspect]
     Indication: OSTEOPOROSIS
     Dosage: 75 MG, 2 CONSECUTIVE DAYS MONTHLY, ORAL
     Route: 048
     Dates: start: 20090805
  2. BONIVA [Suspect]
     Indication: OSTEOPOROSIS
     Dosage: 150 MG MONTHLY, ORAL
     Route: 048
     Dates: start: 20100204, end: 20110701
  3. ACTONEL [Suspect]
     Indication: OSTEOPOROSIS
     Dosage: 150 MG, ONCE MONTHLY, ORAL
     Route: 048
     Dates: start: 20090522, end: 20100204
  4. ACTONEL [Suspect]
     Indication: OSTEOPOROSIS
     Dosage: 35 MG, ONCE WEEKLY,ORAL
     Route: 048
     Dates: start: 20041111, end: 20090501

REACTIONS (19)
  - RENAL CYST [None]
  - PAIN IN EXTREMITY [None]
  - FRACTURE NONUNION [None]
  - ULNOCARPAL ABUTMENT SYNDROME [None]
  - BURSITIS [None]
  - KNEE ARTHROPLASTY [None]
  - ONYCHOMYCOSIS [None]
  - RIB FRACTURE [None]
  - INTERVERTEBRAL DISC PROTRUSION [None]
  - FALL [None]
  - FLANK PAIN [None]
  - POLLAKIURIA [None]
  - OSTEOARTHRITIS [None]
  - OSTEONECROSIS [None]
  - BACK PAIN [None]
  - PATHOLOGICAL FRACTURE [None]
  - STRESS FRACTURE [None]
  - ATYPICAL FEMUR FRACTURE [None]
  - MICTURITION URGENCY [None]
